FAERS Safety Report 8702305 (Version 2)
Quarter: 2013Q1

REPORT INFORMATION
  Report Type: Spontaneous
  Country: MX (occurrence: MX)
  Receive Date: 20120803
  Receipt Date: 20130108
  Transmission Date: 20140127
  Serious: Yes (Hospitalization)
  Sender: FDA-Public Use
  Company Number: MX-SANOFI-AVENTIS-2012SA053147

PATIENT
  Age: 6 Year
  Sex: Male
  Weight: 19.2 kg

DRUGS (2)
  1. CLAFORAN [Suspect]
     Indication: GASTROINTESTINAL INFECTION
     Route: 042
     Dates: start: 20120721, end: 20120726
  2. METAMIZOLE SODIUM [Concomitant]
     Indication: PYREXIA
     Dosage: DOSE: 10 MG/KG/DOSE
     Route: 042
     Dates: start: 20120721

REACTIONS (6)
  - Leukocytosis [Not Recovered/Not Resolved]
  - Drug ineffective [Unknown]
  - Neutrophilia [Not Recovered/Not Resolved]
  - Lymphocytosis [Not Recovered/Not Resolved]
  - Monocytopenia [Not Recovered/Not Resolved]
  - Pyrexia [Not Recovered/Not Resolved]
